FAERS Safety Report 9411641 (Version 1)
Quarter: 2013Q3

REPORT INFORMATION
  Report Type: Spontaneous
  Country: US (occurrence: None)
  Receive Date: 20130719
  Receipt Date: 20130719
  Transmission Date: 20140515
  Serious: Yes (Other)
  Sender: FDA-Public Use
  Company Number: None

PATIENT
  Sex: 0

DRUGS (2)
  1. DILTIAZEM CD [Suspect]
     Indication: HEART TRANSPLANT
     Dosage: MULTIPLE STRENGTHS ONCE DAILY ORAL
     Route: 048
  2. DILTIAZEM HYDROCHLORIDE [Suspect]
     Dosage: MULTIPLE STRENGTHS TWICE DAILY ORAL
     Route: 048

REACTIONS (2)
  - Medication error [None]
  - Product packaging issue [None]
